FAERS Safety Report 15165044 (Version 2)
Quarter: 2025Q3

REPORT INFORMATION
  Report Type: Report from Study
  Country: EU (occurrence: EU)
  Receive Date: 20180719
  Receipt Date: 20250708
  Transmission Date: 20251020
  Serious: Yes (Congenital Anomaly, Other)
  Sender: AUROBINDO
  Company Number: EU-AUROBINDO-AUR-APL-2018-036120

PATIENT
  Sex: Male
  Weight: 0.367 kg

DRUGS (3)
  1. HYDROCHLOROTHIAZIDE [Suspect]
     Active Substance: HYDROCHLOROTHIAZIDE
     Indication: Product used for unknown indication
     Route: 065
  2. LISINOPRIL [Suspect]
     Active Substance: LISINOPRIL
     Indication: Product used for unknown indication
     Route: 065
  3. METHYLDOPA [Suspect]
     Active Substance: METHYLDOPA
     Indication: Product used for unknown indication
     Route: 064

REACTIONS (2)
  - Hypospadias [Unknown]
  - Foetal exposure during pregnancy [Unknown]
